FAERS Safety Report 18140741 (Version 2)
Quarter: 2020Q3

REPORT INFORMATION
  Report Type: Spontaneous
  Country: SE (occurrence: SE)
  Receive Date: 20200812
  Receipt Date: 20200902
  Transmission Date: 20201103
  Serious: Yes (Hospitalization, Other)
  Sender: FDA-Public Use
  Company Number: SE-PFIZER INC-2020309928

PATIENT
  Age: 40 Year
  Sex: Female

DRUGS (5)
  1. T.FOLACIN [Concomitant]
     Dosage: UNK
     Route: 065
  2. NSAID?K [Concomitant]
     Active Substance: KETOROLAC TROMETHAMINE
     Indication: ARTHROPATHY
     Dosage: UNK
     Route: 065
  3. METHOTREXATE SODIUM. [Suspect]
     Active Substance: METHOTREXATE SODIUM
     Indication: PSORIASIS
     Dosage: 7.5 MG, WEEKLY
     Route: 065
     Dates: start: 202001
  4. METHOTREXATE SODIUM. [Suspect]
     Active Substance: METHOTREXATE SODIUM
     Dosage: 15MG, WEEKLY, GRADUAL INCREASE
     Route: 065
  5. VOXRA [Concomitant]
     Active Substance: BUPROPION HYDROCHLORIDE
     Indication: DEPRESSION
     Dosage: UNK
     Route: 065

REACTIONS (2)
  - Illness [Unknown]
  - Gastric ulcer haemorrhage [Unknown]
